FAERS Safety Report 18576677 (Version 1)
Quarter: 2020Q4

REPORT INFORMATION
  Report Type: Report from Study
  Country: IT (occurrence: IT)
  Receive Date: 20201203
  Receipt Date: 20201203
  Transmission Date: 20210114
  Serious: Yes (Other)
  Sender: FDA-Public Use
  Company Number: IT-MYLANLABS-2020M1099117

PATIENT

DRUGS (2)
  1. DEXMEDETOMIDINE. [Suspect]
     Active Substance: DEXMEDETOMIDINE
     Dosage: CONTINUOUS INFUSION OF 1-2 MICROGRAM/KG/H
     Route: 042
  2. DEXMEDETOMIDINE. [Suspect]
     Active Substance: DEXMEDETOMIDINE
     Indication: SEDATIVE THERAPY
     Dosage: 2 MICROGRAM/KILOGRAM OVER 10 MINUTES
     Route: 040

REACTIONS (2)
  - Off label use [Recovered/Resolved]
  - Bradycardia [Recovered/Resolved]
